FAERS Safety Report 25363366 (Version 2)
Quarter: 2025Q2

REPORT INFORMATION
  Report Type: Spontaneous
  Country: US (occurrence: US)
  Receive Date: 20250527
  Receipt Date: 20250604
  Transmission Date: 20250717
  Serious: No
  Sender: ELI LILLY AND COMPANY
  Company Number: US-ELI_LILLY_AND_COMPANY-US202505018567

PATIENT
  Age: 68 Year
  Sex: Female

DRUGS (51)
  1. ZEPBOUND [Suspect]
     Active Substance: TIRZEPATIDE
     Indication: Weight control
     Route: 058
     Dates: start: 2024
  2. ZEPBOUND [Suspect]
     Active Substance: TIRZEPATIDE
     Indication: Weight control
     Route: 058
     Dates: start: 2024
  3. ZEPBOUND [Suspect]
     Active Substance: TIRZEPATIDE
     Indication: Weight control
     Route: 058
     Dates: start: 2024
  4. ZEPBOUND [Suspect]
     Active Substance: TIRZEPATIDE
     Indication: Weight control
     Route: 058
     Dates: start: 2024
  5. ZEPBOUND [Suspect]
     Active Substance: TIRZEPATIDE
     Indication: Glycosylated haemoglobin increased
  6. ZEPBOUND [Suspect]
     Active Substance: TIRZEPATIDE
     Indication: Glycosylated haemoglobin increased
  7. ZEPBOUND [Suspect]
     Active Substance: TIRZEPATIDE
     Indication: Glycosylated haemoglobin increased
  8. ZEPBOUND [Suspect]
     Active Substance: TIRZEPATIDE
     Indication: Glycosylated haemoglobin increased
  9. ZEPBOUND [Suspect]
     Active Substance: TIRZEPATIDE
     Indication: Arthritis
  10. ZEPBOUND [Suspect]
     Active Substance: TIRZEPATIDE
     Indication: Arthritis
  11. ZEPBOUND [Suspect]
     Active Substance: TIRZEPATIDE
     Indication: Arthritis
  12. ZEPBOUND [Suspect]
     Active Substance: TIRZEPATIDE
     Indication: Arthritis
  13. ZEPBOUND [Suspect]
     Active Substance: TIRZEPATIDE
     Indication: Weight control
     Route: 058
  14. ZEPBOUND [Suspect]
     Active Substance: TIRZEPATIDE
     Indication: Weight control
     Route: 058
  15. ZEPBOUND [Suspect]
     Active Substance: TIRZEPATIDE
     Indication: Weight control
     Route: 058
  16. ZEPBOUND [Suspect]
     Active Substance: TIRZEPATIDE
     Indication: Weight control
     Route: 058
  17. ZEPBOUND [Suspect]
     Active Substance: TIRZEPATIDE
     Indication: Glycosylated haemoglobin increased
  18. ZEPBOUND [Suspect]
     Active Substance: TIRZEPATIDE
     Indication: Glycosylated haemoglobin increased
  19. ZEPBOUND [Suspect]
     Active Substance: TIRZEPATIDE
     Indication: Glycosylated haemoglobin increased
  20. ZEPBOUND [Suspect]
     Active Substance: TIRZEPATIDE
     Indication: Glycosylated haemoglobin increased
  21. ZEPBOUND [Suspect]
     Active Substance: TIRZEPATIDE
     Indication: Arthritis
  22. ZEPBOUND [Suspect]
     Active Substance: TIRZEPATIDE
     Indication: Arthritis
  23. ZEPBOUND [Suspect]
     Active Substance: TIRZEPATIDE
     Indication: Arthritis
  24. ZEPBOUND [Suspect]
     Active Substance: TIRZEPATIDE
     Indication: Arthritis
  25. ZEPBOUND [Suspect]
     Active Substance: TIRZEPATIDE
     Indication: Weight control
     Route: 058
  26. ZEPBOUND [Suspect]
     Active Substance: TIRZEPATIDE
     Indication: Weight control
     Route: 058
  27. ZEPBOUND [Suspect]
     Active Substance: TIRZEPATIDE
     Indication: Weight control
     Route: 058
  28. ZEPBOUND [Suspect]
     Active Substance: TIRZEPATIDE
     Indication: Weight control
     Route: 058
  29. ZEPBOUND [Suspect]
     Active Substance: TIRZEPATIDE
     Indication: Glycosylated haemoglobin increased
  30. ZEPBOUND [Suspect]
     Active Substance: TIRZEPATIDE
     Indication: Glycosylated haemoglobin increased
  31. ZEPBOUND [Suspect]
     Active Substance: TIRZEPATIDE
     Indication: Glycosylated haemoglobin increased
  32. ZEPBOUND [Suspect]
     Active Substance: TIRZEPATIDE
     Indication: Glycosylated haemoglobin increased
  33. ZEPBOUND [Suspect]
     Active Substance: TIRZEPATIDE
     Indication: Arthritis
  34. ZEPBOUND [Suspect]
     Active Substance: TIRZEPATIDE
     Indication: Arthritis
  35. ZEPBOUND [Suspect]
     Active Substance: TIRZEPATIDE
     Indication: Arthritis
  36. ZEPBOUND [Suspect]
     Active Substance: TIRZEPATIDE
     Indication: Arthritis
  37. ZEPBOUND [Suspect]
     Active Substance: TIRZEPATIDE
     Indication: Weight control
     Route: 058
  38. ZEPBOUND [Suspect]
     Active Substance: TIRZEPATIDE
     Indication: Weight control
     Route: 058
  39. ZEPBOUND [Suspect]
     Active Substance: TIRZEPATIDE
     Indication: Weight control
     Route: 058
  40. ZEPBOUND [Suspect]
     Active Substance: TIRZEPATIDE
     Indication: Weight control
     Route: 058
  41. ZEPBOUND [Suspect]
     Active Substance: TIRZEPATIDE
     Indication: Weight control
     Route: 058
  42. ZEPBOUND [Suspect]
     Active Substance: TIRZEPATIDE
     Indication: Glycosylated haemoglobin increased
     Route: 058
  43. ZEPBOUND [Suspect]
     Active Substance: TIRZEPATIDE
     Indication: Glycosylated haemoglobin increased
     Route: 058
  44. ZEPBOUND [Suspect]
     Active Substance: TIRZEPATIDE
     Indication: Glycosylated haemoglobin increased
     Route: 058
  45. ZEPBOUND [Suspect]
     Active Substance: TIRZEPATIDE
     Indication: Glycosylated haemoglobin increased
     Route: 058
  46. ZEPBOUND [Suspect]
     Active Substance: TIRZEPATIDE
     Indication: Glycosylated haemoglobin increased
     Route: 058
  47. ZEPBOUND [Suspect]
     Active Substance: TIRZEPATIDE
     Indication: Arthritis
  48. ZEPBOUND [Suspect]
     Active Substance: TIRZEPATIDE
     Indication: Arthritis
  49. ZEPBOUND [Suspect]
     Active Substance: TIRZEPATIDE
     Indication: Arthritis
  50. ZEPBOUND [Suspect]
     Active Substance: TIRZEPATIDE
     Indication: Arthritis
  51. ZEPBOUND [Suspect]
     Active Substance: TIRZEPATIDE
     Indication: Arthritis

REACTIONS (4)
  - Incorrect dose administered [Unknown]
  - Asthenia [Unknown]
  - Nausea [Unknown]
  - Injection site pain [Unknown]

NARRATIVE: CASE EVENT DATE: 20240101
